FAERS Safety Report 5153651-3 (Version None)
Quarter: 2006Q4

REPORT INFORMATION
  Report Type: 
  Country: None (occurrence: None)
  Receive Date: 20061114
  Receipt Date: 20061030
  Transmission Date: 20070319
  Serious: Yes (Hospitalization)
  Sender: FDA-Public Use
  Company Number: 2006063363

PATIENT
  Age: 68 Year
  Sex: Female

DRUGS (5)
  1. ARTROTEC(DICLOFENAC SODIUM, MISOPROSTOL) [Suspect]
     Indication: MUSCULOSKELETAL PAIN
     Dosage: ORAL
     Route: 048
  2. TENORETIC 100 [Suspect]
     Dosage: 50 + 12.5 MG (DAILY), ORAL
     Route: 048
     Dates: start: 20051216, end: 20060215
  3. HYTACAND (CANDESARTAN CILEXETIL, HYDROCHLOROTHIAZIDE) [Suspect]
     Dosage: 1 DF (DAILY), ORAL
     Route: 048
     Dates: start: 20040616, end: 20051215
  4. TENORETIC 100 [Concomitant]
  5. TENORMIN [Concomitant]

REACTIONS (3)
  - BRONCHIECTASIS [None]
  - INTERSTITIAL LUNG DISEASE [None]
  - PULMONARY FIBROSIS [None]
